FAERS Safety Report 6521527-2 (Version None)
Quarter: 2009Q4

REPORT INFORMATION
  Report Type: 
  Country: None (occurrence: None)
  Receive Date: 20091222
  Receipt Date: 20091217
  Transmission Date: 20100525
  Serious: Yes (Death, Hospitalization)
  Sender: FDA-Public Use
  Company Number: DSA_41928_2009

PATIENT
  Sex: Male

DRUGS (5)
  1. XENAZINE [Suspect]
     Indication: DYSTONIA
     Dosage: (62.5 MG TOTAL DAILY DOSE OTHER), (12.5 MG BID ORAL)
     Route: 048
     Dates: start: 20090730, end: 20090101
  2. XENAZINE [Suspect]
     Indication: DYSTONIA
     Dosage: (62.5 MG TOTAL DAILY DOSE OTHER), (12.5 MG BID ORAL)
     Route: 048
     Dates: start: 20090101, end: 20091011
  3. VALIUM [Suspect]
     Indication: MUSCLE SPASTICITY
     Dosage: (6 MG TID), (8 MG QID)
     Dates: end: 20090801
  4. RESERPINE [Concomitant]
  5. BACLOFEN [Concomitant]

REACTIONS (10)
  - CONVULSION [None]
  - DERMATITIS DIAPER [None]
  - EYE DISORDER [None]
  - FEEDING TUBE COMPLICATION [None]
  - LATEX ALLERGY [None]
  - LIP DISCOLOURATION [None]
  - PERITONITIS [None]
  - PNEUMONIA ASPIRATION [None]
  - RESPIRATORY ARREST [None]
  - STAPHYLOCOCCAL INFECTION [None]
